FAERS Safety Report 24677534 (Version 2)
Quarter: 2024Q4

REPORT INFORMATION
  Report Type: Spontaneous
  Country: JP (occurrence: JP)
  Receive Date: 20241129
  Receipt Date: 20241201
  Transmission Date: 20250115
  Serious: No
  Sender: AMGEN
  Company Number: JP-KYOWAKIRIN-2024KK024979

PATIENT
  Age: 48 Year
  Sex: Male

DRUGS (1)
  1. DARBEPOETIN ALFA [Suspect]
     Active Substance: DARBEPOETIN ALFA
     Indication: Nephrogenic anaemia
     Dosage: 180 MICROGRAM, Q4WK
     Route: 065

REACTIONS (1)
  - Haemoglobin decreased [Unknown]
